FAERS Safety Report 7622266-7 (Version None)
Quarter: 2011Q3

REPORT INFORMATION
  Report Type: 
  Country: None (occurrence: None)
  Receive Date: 20110720
  Receipt Date: 20101210
  Transmission Date: 20111222
  Serious: Yes (Other)
  Sender: FDA-Public Use
  Company Number: US-BAYER-2010-005256

PATIENT
  Age: 41 Year
  Sex: Male

DRUGS (1)
  1. MAGNEVIST [Suspect]
     Indication: PRODUCT USED FOR UNKNOWN INDICATION
     Dosage: 17 ML, ONCE
     Route: 042
     Dates: start: 20101210, end: 20101210

REACTIONS (8)
  - ERYTHEMA [None]
  - ORAL DISCOMFORT [None]
  - ORAL PRURITUS [None]
  - URTICARIA [None]
  - PRURITUS [None]
  - ANXIETY [None]
  - CHEST PAIN [None]
  - DYSGEUSIA [None]
